FAERS Safety Report 19535370 (Version 2)
Quarter: 2022Q3

REPORT INFORMATION
  Report Type: Other
  Country: CA (occurrence: CA)
  Receive Date: 20210713
  Receipt Date: 20220705
  Transmission Date: 20221027
  Serious: Yes (Life-Threatening, Hospitalization, Other)
  Sender: FDA-Public Use
  Company Number: CA-PFIZER INC-2021849911

PATIENT
  Age: 3 Decade
  Sex: Male

DRUGS (14)
  1. ZIPRASIDONE HYDROCHLORIDE [Suspect]
     Active Substance: ZIPRASIDONE HYDROCHLORIDE
     Indication: Aggression
     Dosage: UNK
     Route: 065
  2. ZIPRASIDONE HYDROCHLORIDE [Suspect]
     Active Substance: ZIPRASIDONE HYDROCHLORIDE
     Indication: Abnormal behaviour
     Dosage: UNK
     Route: 065
  3. ZIPRASIDONE HYDROCHLORIDE [Suspect]
     Active Substance: ZIPRASIDONE HYDROCHLORIDE
     Dosage: UNK
     Route: 048
  4. ARIPIPRAZOLE [Suspect]
     Active Substance: ARIPIPRAZOLE
     Indication: Aggression
     Dosage: UNK
     Route: 065
  5. ARIPIPRAZOLE [Suspect]
     Active Substance: ARIPIPRAZOLE
     Indication: Abnormal behaviour
     Dosage: UNK
     Route: 065
  6. ARIPIPRAZOLE [Suspect]
     Active Substance: ARIPIPRAZOLE
     Dosage: UNK
     Route: 048
  7. CLONAZEPAM [Suspect]
     Active Substance: CLONAZEPAM
     Indication: Aggression
     Dosage: UNK
     Route: 065
  8. CLONAZEPAM [Suspect]
     Active Substance: CLONAZEPAM
     Indication: Abnormal behaviour
     Dosage: UNK
     Route: 065
  9. CLONAZEPAM [Suspect]
     Active Substance: CLONAZEPAM
     Dosage: UNK
     Route: 048
  10. CLONAZEPAM [Suspect]
     Active Substance: CLONAZEPAM
     Dosage: UNK
     Route: 065
  11. ZUCLOPENTHIXOL ACETATE [Suspect]
     Active Substance: ZUCLOPENTHIXOL ACETATE
     Indication: Paranoia
     Dosage: UNK
     Route: 030
  12. ZUCLOPENTHIXOL ACETATE [Suspect]
     Active Substance: ZUCLOPENTHIXOL ACETATE
     Indication: Paranoia
     Dosage: UNK
  13. ZUCLOPENTHIXOL ACETATE [Suspect]
     Active Substance: ZUCLOPENTHIXOL ACETATE
     Indication: Aggression
     Dosage: UNK
  14. ZUCLOPENTHIXOL ACETATE [Suspect]
     Active Substance: ZUCLOPENTHIXOL ACETATE
     Indication: Abnormal behaviour
     Dosage: UNK
     Route: 030

REACTIONS (13)
  - Abnormal behaviour [Recovered/Resolved]
  - Acute kidney injury [Recovered/Resolved]
  - Anger [Recovered/Resolved]
  - Catatonia [Recovered/Resolved]
  - Condition aggravated [Recovered/Resolved]
  - Delusion [Recovered/Resolved]
  - Irritability [Recovered/Resolved]
  - Neuroleptic malignant syndrome [Recovered/Resolved]
  - Posture abnormal [Recovered/Resolved]
  - Rhabdomyolysis [Recovered/Resolved]
  - Suicidal ideation [Recovered/Resolved]
  - Tachycardia [Recovered/Resolved]
  - Treatment noncompliance [Recovered/Resolved]
